FAERS Safety Report 5836391-4 (Version None)
Quarter: 2008Q3

REPORT INFORMATION
  Report Type: 
  Country: None (occurrence: None)
  Receive Date: 20080806
  Receipt Date: 20080806
  Transmission Date: 20090109
  Serious: Yes (Other)
  Sender: FDA-Public Use
  Company Number: None

PATIENT
  Sex: Female
  Weight: 74.3899 kg

DRUGS (6)
  1. CYMBALTA [Suspect]
     Indication: DEPRESSION
     Dosage: CYMBALTA 30MGS 1X PER DAY PO
     Route: 048
     Dates: start: 20040604, end: 20080801
  2. CYMBALTA [Suspect]
     Indication: FIBROMYALGIA
     Dosage: CYMBALTA 30MGS 1X PER DAY PO
     Route: 048
     Dates: start: 20040604, end: 20080801
  3. CYMBALTA [Suspect]
     Indication: PREMENSTRUAL SYNDROME
     Dosage: CYMBALTA 30MGS 1X PER DAY PO
     Route: 048
     Dates: start: 20040604, end: 20080801
  4. CYMBALTA [Suspect]
     Indication: DEPRESSION
     Dosage: CYMBALTA 60MGS 1X PER DAY PO
     Route: 048
     Dates: start: 20040604, end: 20080801
  5. CYMBALTA [Suspect]
     Indication: FIBROMYALGIA
     Dosage: CYMBALTA 60MGS 1X PER DAY PO
     Route: 048
     Dates: start: 20040604, end: 20080801
  6. CYMBALTA [Suspect]
     Indication: PREMENSTRUAL SYNDROME
     Dosage: CYMBALTA 60MGS 1X PER DAY PO
     Route: 048
     Dates: start: 20040604, end: 20080801

REACTIONS (25)
  - BACK PAIN [None]
  - COLD SWEAT [None]
  - CRYING [None]
  - DIZZINESS [None]
  - DRUG WITHDRAWAL SYNDROME [None]
  - DYSPNOEA [None]
  - EMOTIONAL DISORDER [None]
  - FATIGUE [None]
  - FEELING ABNORMAL [None]
  - HEADACHE [None]
  - HEART RATE INCREASED [None]
  - INAPPROPRIATE SCHEDULE OF DRUG ADMINISTRATION [None]
  - INFLUENZA LIKE ILLNESS [None]
  - IRRITABILITY [None]
  - LETHARGY [None]
  - MOOD SWINGS [None]
  - MUSCLE TIGHTNESS [None]
  - MUSCLE TWITCHING [None]
  - NAUSEA [None]
  - NECK PAIN [None]
  - PAIN [None]
  - PALLOR [None]
  - RHINORRHOEA [None]
  - SINUS HEADACHE [None]
  - TENSION HEADACHE [None]
